FAERS Safety Report 5726201-8 (Version None)
Quarter: 2008Q2

REPORT INFORMATION
  Report Type: 
  Country: None (occurrence: None)
  Receive Date: 20080502
  Receipt Date: 20080421
  Transmission Date: 20081010
  Serious: Yes (Life-Threatening, Hospitalization)
  Sender: FDA-Public Use
  Company Number: NO-AMGEN-US270445

PATIENT
  Sex: Female

DRUGS (6)
  1. ENBREL [Suspect]
     Indication: PSORIATIC ARTHROPATHY
     Route: 058
     Dates: start: 20030316, end: 20080317
  2. ENALAPRIL [Concomitant]
     Route: 048
  3. ARICEPT [Concomitant]
     Indication: DEMENTIA ALZHEIMER'S TYPE
     Route: 048
  4. VOLTAREN [Concomitant]
     Indication: ARTHRITIS
     Route: 048
  5. PREDNISOLONE [Concomitant]
     Indication: ARTHRITIS
     Route: 048
  6. SELOKEN [Concomitant]
     Indication: HYPERTENSION
     Route: 048

REACTIONS (1)
  - RENAL CELL CARCINOMA STAGE II [None]
